FAERS Safety Report 15977880 (Version 2)
Quarter: 2019Q1

REPORT INFORMATION
  Report Type: Report from Study
  Country: None (occurrence: FI)
  Receive Date: 20190218
  Receipt Date: 20190306
  Transmission Date: 20190418
  Serious: Yes (Death, Other)
  Sender: FDA-Public Use
  Company Number: FI-ABBVIE-19S-055-2670509-00

PATIENT
  Age: 79 Year
  Sex: Male

DRUGS (1)
  1. DUODOPA [Suspect]
     Active Substance: CARBIDOPA\LEVODOPA
     Indication: PRODUCT USED FOR UNKNOWN INDICATION
     Route: 050
     Dates: end: 20190212

REACTIONS (2)
  - Pneumonia [Fatal]
  - Device occlusion [Not Recovered/Not Resolved]
